FAERS Safety Report 9118330 (Version 1)
Quarter: 2013Q1

REPORT INFORMATION
  Report Type: Spontaneous
  Country: DE (occurrence: None)
  Receive Date: 20130128
  Receipt Date: 20130128
  Transmission Date: 20140127
  Serious: Yes (Congenital Anomaly)
  Sender: FDA-Public Use
  Company Number: DKLU1088149

PATIENT
  Sex: 0

DRUGS (5)
  1. ONFI [Suspect]
     Route: 064
     Dates: start: 20120405
  2. ERGENYL [Suspect]
     Route: 064
     Dates: start: 20120405
  3. LAMOTRIGINE (LAMOTRIGINE) [Suspect]
     Route: 064
     Dates: start: 20120405
  4. VALPROIC ACID [Suspect]
     Route: 064
     Dates: start: 20120405
  5. YASMIN [Concomitant]

REACTIONS (4)
  - Exposure during pregnancy [None]
  - Cephalo-pelvic disproportion [None]
  - Ultrasound antenatal screen abnormal [None]
  - Abortion induced [None]
